FAERS Safety Report 8379150-3 (Version None)
Quarter: 2012Q2

REPORT INFORMATION
  Report Type: 
  Country: None (occurrence: None)
  Receive Date: 20120523
  Receipt Date: 20120515
  Transmission Date: 20120825
  Serious: Yes (Hospitalization)
  Sender: FDA-Public Use
  Company Number: NL-SANOFI-AVENTIS-2012SA034683

PATIENT
  Age: 82 Year
  Sex: Male

DRUGS (11)
  1. FERROUS SULFATE TAB [Concomitant]
     Dosage: STRENGTH: 105 MG
     Route: 047
  2. DURATEARS [Concomitant]
     Route: 047
  3. OXAZEPAM [Concomitant]
     Route: 048
  4. METOPROLOL [Concomitant]
     Route: 048
  5. VENLAFAXINE [Suspect]
     Route: 048
  6. PRAVASTATIN [Concomitant]
     Route: 048
  7. OMEPRAZOLE [Concomitant]
     Route: 048
  8. DIGOXIN [Concomitant]
     Dosage: STRENGTH: 125MG
     Route: 048
  9. FUROSEMIDE [Suspect]
     Route: 048
  10. FORADIL [Concomitant]
     Dosage: STRENGTH:12MCG INHALATOR
     Route: 055
  11. ACENOCOUMAROL [Concomitant]
     Route: 048

REACTIONS (2)
  - HYPONATRAEMIA [None]
  - MALAISE [None]
